FAERS Safety Report 8518196-9 (Version None)
Quarter: 2012Q3

REPORT INFORMATION
  Report Type: 
  Country: None (occurrence: None)
  Receive Date: 20120718
  Receipt Date: 20111129
  Transmission Date: 20120928
  Serious: No
  Sender: FDA-Public Use
  Company Number: US-BRISTOL-MYERS SQUIBB COMPANY-16206609

PATIENT
  Age: 83 Year
  Sex: Female
  Weight: 49 kg

DRUGS (6)
  1. DIGOXIN [Concomitant]
  2. COUMADIN [Suspect]
     Indication: THROMBOSIS
     Dosage: POTENTIAL WARFARIN
     Route: 048
     Dates: start: 20100901
  3. COUMADIN [Suspect]
     Indication: ATRIAL FIBRILLATION
     Dosage: POTENTIAL WARFARIN
     Route: 048
     Dates: start: 20100901
  4. ASPIRIN [Concomitant]
  5. LISINOPRIL [Concomitant]
     Dates: end: 20111030
  6. METOPROLOL SUCCINATE [Concomitant]

REACTIONS (1)
  - SENSORY LOSS [None]
